FAERS Safety Report 6968818-9 (Version None)
Quarter: 2010Q3

REPORT INFORMATION
  Report Type: 
  Country: None (occurrence: None)
  Receive Date: 20100823
  Receipt Date: 20100526
  Transmission Date: 20110219
  Serious: No
  Sender: FDA-Public Use
  Company Number: 012682

PATIENT
  Sex: Female
  Weight: 81.8 kg

DRUGS (2)
  1. CIMZIA [Suspect]
     Indication: CROHN'S DISEASE
     Dosage: (SUBCUTANEOUS)
     Route: 058
     Dates: start: 20091201
  2. PROZAC /00724401/ [Concomitant]

REACTIONS (1)
  - DYSPNOEA [None]
